FAERS Safety Report 5728672-X (Version None)
Quarter: 2008Q2

REPORT INFORMATION
  Report Type: 
  Country: None (occurrence: None)
  Receive Date: 20080430
  Receipt Date: 20080415
  Transmission Date: 20081010
  Serious: Yes (Disabling)
  Sender: FDA-Public Use
  Company Number: 8031131

PATIENT
  Age: 37 Year
  Sex: Male
  Weight: 79 kg

DRUGS (3)
  1. KEPPRA [Suspect]
     Indication: EPILEPSY
     Dosage: 500 MG 4/D PO
     Route: 048
     Dates: start: 20071101, end: 20080301
  2. RIVOTRIL [Concomitant]
  3. IRBESARTAN [Concomitant]

REACTIONS (6)
  - ANXIETY [None]
  - DISTURBANCE IN ATTENTION [None]
  - DYSTHYMIC DISORDER [None]
  - FATIGUE [None]
  - SOMNOLENCE [None]
  - TREMOR [None]
